FAERS Safety Report 5221023-9 (Version None)
Quarter: 2007Q1

REPORT INFORMATION
  Report Type: 
  Country: None (occurrence: None)
  Receive Date: 20070126
  Receipt Date: 20070112
  Transmission Date: 20070707
  Serious: Yes (Hospitalization, Other)
  Sender: FDA-Public Use
  Company Number: US-AMGEN-KDL201500

PATIENT
  Sex: Female

DRUGS (1)
  1. ENBREL [Suspect]
     Indication: RHEUMATOID ARTHRITIS
     Route: 058
     Dates: start: 20061001

REACTIONS (4)
  - AMYLOIDOSIS [None]
  - ASTHMA [None]
  - BRONCHOPNEUMONIA [None]
  - PNEUMONIA ASPIRATION [None]
